FAERS Safety Report 17115168 (Version 1)
Quarter: 2019Q4

REPORT INFORMATION
  Report Type: Spontaneous
  Country: US (occurrence: US)
  Receive Date: 20191205
  Receipt Date: 20191205
  Transmission Date: 20200122
  Serious: No
  Sender: FDA-Public Use
  Company Number: US-GW PHARMA-201911USGW4302

PATIENT

DRUGS (3)
  1. EPIDIOLEX [Suspect]
     Active Substance: CANNABIDIOL
     Indication: PRODUCT USED FOR UNKNOWN INDICATION
     Dosage: 2.09 MG/KG, 100 MILLIGRAM, BID
     Route: 048
     Dates: start: 201903, end: 2019
  2. EPIDIOLEX [Suspect]
     Active Substance: CANNABIDIOL
     Dosage: 17.76 MG/KG, 850 MILLIGRAM, BID
     Route: 048
     Dates: start: 20191105
  3. EPIDIOLEX [Suspect]
     Active Substance: CANNABIDIOL
     Dosage: 17.76 MG/KG, 850 MILLIGRAM, BID
     Route: 048
     Dates: start: 2019, end: 20191104

REACTIONS (4)
  - Generalised tonic-clonic seizure [Unknown]
  - Generalised tonic-clonic seizure [Recovered/Resolved]
  - Generalised tonic-clonic seizure [Recovered/Resolved]
  - Petit mal epilepsy [Recovered/Resolved]

NARRATIVE: CASE EVENT DATE: 201908
